FAERS Safety Report 4974819-2 (Version None)
Quarter: 2006Q1

REPORT INFORMATION
  Report Type: 
  Country: None (occurrence: None)
  Receive Date: 20060216
  Receipt Date: 20040719
  Transmission Date: 20060701
  Serious: Yes (Other)
  Sender: FDA-Public Use
  Company Number: 2004IM000720

PATIENT
  Age: 61 Year
  Sex: Female
  Weight: 48 kg

DRUGS (12)
  1. INTERFERON GAMMA-1B [Suspect]
     Indication: OVARIAN CANCER
     Dosage: 100 UG, TIW, SUBCUTANEOUS
     Route: 058
     Dates: start: 20040212, end: 20040315
  2. CARBOPLATIN [Suspect]
     Indication: OVARIAN CANCER
     Dosage: 456 MG, Q3W, INTRAVENOUS
     Route: 042
     Dates: start: 20040212, end: 20040303
  3. PACLITAXEL [Suspect]
     Indication: OVARIAN CANCER
     Dosage: 259 MG, Q3W, INTRAVENOUS
     Route: 042
     Dates: start: 20040212, end: 20040303
  4. CALCIUM GLUCONATE [Concomitant]
  5. SENOKOT [Concomitant]
  6. COLACE [Concomitant]
  7. LOSEC [Concomitant]
  8. PEPCID [Concomitant]
  9. BENADRYL [Concomitant]
  10. DECADRON [Concomitant]
  11. KYTRIL [Concomitant]
  12. TYLENOL (CAPLET) [Concomitant]

REACTIONS (1)
  - NEUTROPENIA [None]
